FAERS Safety Report 5576684-1 (Version None)
Quarter: 2007Q4

REPORT INFORMATION
  Report Type: 
  Country: None (occurrence: None)
  Receive Date: 20071228
  Receipt Date: 20071104
  Transmission Date: 20080405
  Serious: Yes (Other)
  Sender: FDA-Public Use
  Company Number: US-PURDUE-USA_2007_0030788

PATIENT
  Age: 55 Year
  Sex: Male
  Weight: 86 kg

DRUGS (5)
  1. OXYCONTIN [Suspect]
     Indication: PAIN
     Dosage: 120 MG, BID
     Dates: start: 20001201, end: 20061115
  2. VERELAN [Concomitant]
     Dosage: 300 MG, UNK
  3. URSODIOL [Concomitant]
     Dosage: 300 MG, UNK
  4. CLIDINIUM [Concomitant]
  5. AVODART [Concomitant]
     Dosage: .5 MG, UNK

REACTIONS (14)
  - ABDOMINAL PAIN UPPER [None]
  - AMNESIA [None]
  - ANGER [None]
  - ANXIETY [None]
  - ASTHENIA [None]
  - CONSTIPATION [None]
  - DEPRESSION [None]
  - DRUG DEPENDENCE [None]
  - ERECTILE DYSFUNCTION [None]
  - GALLBLADDER OPERATION [None]
  - HEPATIC CIRRHOSIS [None]
  - HYPERTENSION [None]
  - IMPAIRED WORK ABILITY [None]
  - INSOMNIA [None]
